FAERS Safety Report 4300561-7 (Version None)
Quarter: 2004Q1

REPORT INFORMATION
  Report Type: 
  Country: None (occurrence: None)
  Receive Date: 20040217
  Receipt Date: 20040202
  Transmission Date: 20041129
  Serious: Yes (Death)
  Sender: FDA-Public Use
  Company Number: 2003004672

PATIENT
  Age: 18 Year
  Sex: Female

DRUGS (11)
  1. SILDENAFIL (SILDENAFIL) [Suspect]
     Indication: PULMONARY HYPERTENSION
     Dosage: 100 MG (QID), ORAL
     Route: 048
     Dates: start: 20010307
  2. RANITIDINE [Concomitant]
  3. TRACLEER [Concomitant]
  4. DIGOXIN [Concomitant]
  5. EPOPROSTENOL (EPOPROSTENOL) [Concomitant]
  6. FUROSEMIDE [Concomitant]
  7. SPIRONOLACTONE [Concomitant]
  8. POTASSIUM CHLORIDE [Concomitant]
  9. WARFARIN SODIUM [Concomitant]
  10. OXYGEN (OXYGEN) [Concomitant]
  11. LEVOFLOXACIN [Concomitant]

REACTIONS (12)
  - ANXIETY [None]
  - CHEST PAIN [None]
  - CONDITION AGGRAVATED [None]
  - DYSPEPSIA [None]
  - DYSPNOEA EXACERBATED [None]
  - DYSPNOEA EXERTIONAL [None]
  - EXERCISE TOLERANCE DECREASED [None]
  - HAEMOPTYSIS [None]
  - HEADACHE [None]
  - INSOMNIA [None]
  - MUSCLE TIGHTNESS [None]
  - PULMONARY HYPERTENSION [None]
